FAERS Safety Report 25476580 (Version 1)
Quarter: 2025Q2

REPORT INFORMATION
  Report Type: Spontaneous
  Country: US (occurrence: US)
  Receive Date: 20250625
  Receipt Date: 20250625
  Transmission Date: 20250716
  Serious: Yes (Other)
  Sender: SANOFI AVENTIS
  Company Number: US-SA-2025SA178464

PATIENT
  Sex: Male
  Weight: 76.19 kg

DRUGS (10)
  1. DUPIXENT [Suspect]
     Active Substance: DUPILUMAB
     Indication: Dermatitis atopic
     Dosage: 300 MG, QOW
     Route: 058
  2. HUMIRA [Suspect]
     Active Substance: ADALIMUMAB
  3. CARVEDILOL [Concomitant]
     Active Substance: CARVEDILOL
  4. PROTONIX [Concomitant]
     Active Substance: PANTOPRAZOLE SODIUM
  5. PILOCARPINE HYDROCHLORIDE [Concomitant]
     Active Substance: PILOCARPINE HYDROCHLORIDE
  6. ATORVASTATIN CALCIUM [Concomitant]
     Active Substance: ATORVASTATIN CALCIUM
  7. LEVETIRACETAM [Concomitant]
     Active Substance: LEVETIRACETAM
  8. GABAPENTIN [Concomitant]
     Active Substance: GABAPENTIN
  9. NALTREXONE HYDROCHLORIDE [Concomitant]
     Active Substance: NALTREXONE HYDROCHLORIDE
  10. ADALIMUMAB-ADAZ [Concomitant]
     Active Substance: ADALIMUMAB-ADAZ

REACTIONS (5)
  - Colitis [Unknown]
  - Tooth loss [Recovering/Resolving]
  - Gingival swelling [Recovering/Resolving]
  - Eczema [Unknown]
  - Rash [Unknown]
